FAERS Safety Report 8908790 (Version 1)
Quarter: 2012Q4

REPORT INFORMATION
  Report Type: 
  Country: US (occurrence: US)
  Receive Date: 20121113
  Receipt Date: 20121113
  Transmission Date: 20130627
  Serious: No
  Sender: FDA-Public Use
  Company Number: US-AMGEN-USASP2012011791

PATIENT
  Age: 59 Year
  Sex: Female
  Weight: 55.78 kg

DRUGS (8)
  1. ENBREL [Suspect]
     Indication: PRODUCT USED FOR UNKNOWN INDICATION
     Dosage: 50 mg, qwk
     Route: 058
  2. METHOTREXATE [Concomitant]
     Dosage: 2.5 mg, UNK
  3. VITAMIN C                          /00008001/ [Concomitant]
     Dosage: 500 mg, UNK
  4. FISH OIL [Concomitant]
  5. VITAMIN D /00107901/ [Concomitant]
  6. FOLIC ACID [Concomitant]
  7. OMEGA 3 6 9 [Concomitant]
  8. EVOXAC [Concomitant]
     Dosage: 30 mg, UNK

REACTIONS (1)
  - Upper respiratory tract infection [Unknown]
